FAERS Safety Report 18175263 (Version 1)
Quarter: 2020Q3

REPORT INFORMATION
  Report Type: Spontaneous
  Country: US (occurrence: US)
  Receive Date: 20200820
  Receipt Date: 20200820
  Transmission Date: 20201103
  Serious: Yes (Hospitalization)
  Sender: FDA-Public Use
  Company Number: None

PATIENT
  Sex: Male
  Weight: 65.25 kg

DRUGS (3)
  1. TELMISARTAN HCTZ [Concomitant]
     Active Substance: HYDROCHLOROTHIAZIDE\TELMISARTAN
  2. PYLERA [Suspect]
     Active Substance: BISMUTH SUBCITRATE POTASSIUM\METRONIDAZOLE\TETRACYCLINE HYDROCHLORIDE
     Indication: HELICOBACTER INFECTION
  3. GLIMEPERIDE [Concomitant]
     Active Substance: GLIMEPIRIDE

REACTIONS (15)
  - Headache [None]
  - Anxiety [None]
  - Disturbance in attention [None]
  - Hallucination [None]
  - Decreased appetite [None]
  - Dizziness [None]
  - Nausea [None]
  - Head discomfort [None]
  - Vision blurred [None]
  - Weight decreased [None]
  - Faeces discoloured [None]
  - Balance disorder [None]
  - Paraesthesia [None]
  - Hypoaesthesia [None]
  - Dyspepsia [None]
